FAERS Safety Report 10133627 (Version 2)
Quarter: 2014Q2

REPORT INFORMATION
  Report Type: Report from Study
  Country: CA (occurrence: CA)
  Receive Date: 20140428
  Receipt Date: 20140428
  Transmission Date: 20141212
  Serious: Yes (Other)
  Sender: FDA-Public Use
  Company Number: CA-ALEXION-A201101690

PATIENT
  Age: 54 Year
  Sex: Male
  Weight: 441 kg

DRUGS (21)
  1. SOLIRIS 300MG [Suspect]
     Indication: PAROXYSMAL NOCTURNAL HAEMOGLOBINURIA
     Dosage: 600 MG Q 7 DAYSUNK
     Route: 042
     Dates: start: 20110228, end: 20110322
  2. SOLIRIS 300MG [Suspect]
     Dosage: 900 MG Q2W
     Route: 042
     Dates: start: 20110328
  3. PREDNISONE [Concomitant]
     Indication: PAROXYSMAL NOCTURNAL HAEMOGLOBINURIA
     Dosage: 30 MG BID
  4. FOLIC ACID [Concomitant]
     Indication: PAROXYSMAL NOCTURNAL HAEMOGLOBINURIA
     Dosage: 5 MG QD
  5. VITAMIN B12 [Concomitant]
     Indication: IRON DEFICIENCY
     Dosage: 1200 MG QD
  6. FRAGMIN [Concomitant]
     Indication: ANTICOAGULANT THERAPY
     Dosage: 5,000 U QD
     Route: 058
  7. FOSAMAX [Concomitant]
     Indication: OSTEOPOROSIS PROPHYLAXIS
     Dosage: 70 MG Q WEEK
  8. HUMALOG INSULIN [Concomitant]
     Dosage: 28 U IN AM
  9. HUMALOG INSULIN [Concomitant]
     Dosage: 16 U IN PM
  10. OMEGA 3 [Concomitant]
     Dosage: UNK QD
     Route: 048
  11. CALCIUM [Concomitant]
     Dosage: UNK QD
  12. VITAMIN D [Concomitant]
     Dosage: UNK QD
  13. MULTIVITAMIN [Concomitant]
     Dosage: UNK QD
  14. COENZYME Q10 [Concomitant]
     Dosage: UNK QD
  15. GLUTAMINE [Concomitant]
     Dosage: UNK QD
  16. VITAMIN B1 [Concomitant]
     Dosage: UNK QD
  17. VITAMIN B6 [Concomitant]
     Dosage: UNK QD
  18. SPIRONOLACTONE [Concomitant]
     Dosage: 500 MG BID
  19. FUROSEMIDE [Concomitant]
     Dosage: 20 MG QD
  20. PANTOPRAZOLE [Concomitant]
     Dosage: 40 MG QD
  21. CEPHALEXIN [Concomitant]
     Dosage: 500 MG QID X 28 DAYS
     Dates: start: 20111028

REACTIONS (2)
  - Abdominal abscess [Not Recovered/Not Resolved]
  - Chromaturia [Recovered/Resolved]
